FAERS Safety Report 5565945-8 (Version None)
Quarter: 2007Q4

REPORT INFORMATION
  Report Type: 
  Country: None (occurrence: None)
  Receive Date: 20071219
  Receipt Date: 20071213
  Transmission Date: 20080405
  Serious: Yes (Death, Other)
  Sender: FDA-Public Use
  Company Number: PHBS2007IT20906

PATIENT
  Age: 1 Day
  Sex: Male
  Weight: 1.035 kg

DRUGS (7)
  1. BETA BLOCKING AGENTS [Concomitant]
     Route: 064
  2. CEFTAZIDIME [Concomitant]
     Route: 064
  3. ATOSSISCLEROL [Concomitant]
     Route: 064
  4. RED BLOOD CELLS [Concomitant]
     Route: 064
  5. FRESH FROZEN PLASMA [Concomitant]
     Route: 064
  6. OCTREOTIDE ACETATE [Suspect]
     Route: 064
  7. STEROIDS NOS [Concomitant]

REACTIONS (5)
  - DRUG EXPOSURE DURING PREGNANCY [None]
  - INTUBATION [None]
  - LUNG DISORDER [None]
  - NEONATAL RESPIRATORY DISTRESS SYNDROME [None]
  - PREMATURE BABY [None]
